FAERS Safety Report 16582767 (Version 1)
Quarter: 2019Q3

REPORT INFORMATION
  Report Type: Spontaneous
  Country: US (occurrence: US)
  Receive Date: 20190717
  Receipt Date: 20190717
  Transmission Date: 20191004
  Serious: No
  Sender: FDA-Public Use
  Company Number: US-HORIZON-BUP-0034-2019

PATIENT
  Age: 3 Month
  Sex: Female

DRUGS (1)
  1. BUPHENYL [Suspect]
     Active Substance: SODIUM PHENYLBUTYRATE
     Indication: AMINOACIDURIA
     Dosage: 1 GRAM 3 TIMES DAILY BY MOUTH
     Route: 048

REACTIONS (1)
  - Drug intolerance [Not Recovered/Not Resolved]
